FAERS Safety Report 4784761-8 (Version None)
Quarter: 2005Q3

REPORT INFORMATION
  Report Type: 
  Country: None (occurrence: None)
  Receive Date: 20050930
  Receipt Date: 20050524
  Transmission Date: 20060218
  Serious: Yes (Death, Hospitalization, Other)
  Sender: FDA-Public Use
  Company Number: PHEH2005US05910

PATIENT
  Age: 80 Year
  Sex: Female

DRUGS (2)
  1. FEMARA [Suspect]
     Indication: BREAST CANCER METASTATIC
     Dosage: 2.5 MG, QD
     Route: 048
     Dates: start: 20031001, end: 20050519
  2. FEMARA [Suspect]
     Dosage: 2.5 MG, QD
     Route: 048
     Dates: start: 20050523

REACTIONS (8)
  - CIRCULATORY COLLAPSE [None]
  - HYSTERECTOMY [None]
  - IMPAIRED HEALING [None]
  - OOPHORECTOMY [None]
  - OPEN WOUND [None]
  - SEPSIS [None]
  - UTERINE CANCER [None]
  - VAGINAL HAEMORRHAGE [None]
